FAERS Safety Report 4842064-7 (Version None)
Quarter: 2005Q4

REPORT INFORMATION
  Report Type: 
  Country: None (occurrence: None)
  Receive Date: 20051130
  Receipt Date: 20051019
  Transmission Date: 20060501
  Serious: Yes (Other)
  Sender: FDA-Public Use
  Company Number: JP-BRISTOL-MYERS SQUIBB COMPANY-13154463

PATIENT
  Age: 71 Year
  Sex: Female

DRUGS (2)
  1. TAXOL [Suspect]
     Indication: OVARIAN CANCER
     Dosage: GIVEN ON POD #18
     Route: 042
  2. PARAPLATIN [Suspect]
     Indication: OVARIAN CANCER
     Dosage: AUC=5 GIVEN ON POD #18
     Route: 042

REACTIONS (1)
  - HEPATIC CIRRHOSIS [None]
